FAERS Safety Report 7272788-6 (Version None)
Quarter: 2011Q1

REPORT INFORMATION
  Report Type: 
  Country: None (occurrence: None)
  Receive Date: 20110203
  Receipt Date: 20110202
  Transmission Date: 20110831
  Serious: Yes (Other)
  Sender: FDA-Public Use
  Company Number: US-PFIZER INC-2011024391

PATIENT
  Sex: Female
  Weight: 36.281 kg

DRUGS (1)
  1. GEODON [Suspect]
     Dosage: UNK

REACTIONS (15)
  - VISUAL IMPAIRMENT [None]
  - GASTROOESOPHAGEAL REFLUX DISEASE [None]
  - DISTURBANCE IN ATTENTION [None]
  - FIBROMYALGIA [None]
  - RASH GENERALISED [None]
  - WEIGHT INCREASED [None]
  - ARTHRALGIA [None]
  - PANIC ATTACK [None]
  - COLON NEOPLASM [None]
  - GASTRITIS [None]
  - ACTIVITIES OF DAILY LIVING IMPAIRED [None]
  - TONGUE DISCOLOURATION [None]
  - MYALGIA [None]
  - INSOMNIA [None]
  - HEADACHE [None]
